FAERS Safety Report 16664250 (Version 1)
Quarter: 2019Q3

REPORT INFORMATION
  Report Type: Spontaneous
  Country: ES (occurrence: ES)
  Receive Date: 20190802
  Receipt Date: 20190802
  Transmission Date: 20191004
  Serious: Yes (Hospitalization)
  Sender: FDA-Public Use
  Company Number: ES-009507513-1908ESP000400

PATIENT
  Age: 50 Year
  Sex: Female

DRUGS (1)
  1. SIMVASTATIN. [Suspect]
     Active Substance: SIMVASTATIN
     Dosage: UNK
     Route: 048
     Dates: start: 201711, end: 201711

REACTIONS (3)
  - Transaminases increased [Unknown]
  - Transaminases increased [Recovered/Resolved]
  - Necrotising myositis [Unknown]

NARRATIVE: CASE EVENT DATE: 201711
